FAERS Safety Report 4482125-8 (Version None)
Quarter: 2004Q4

REPORT INFORMATION
  Report Type: 
  Country: None (occurrence: None)
  Receive Date: 20041020
  Receipt Date: 20041004
  Transmission Date: 20050328
  Serious: Yes (Other)
  Sender: FDA-Public Use
  Company Number: GBS041015696

PATIENT
  Age: 8 Year
  Sex: Female
  Weight: 27 kg

DRUGS (3)
  1. STRATTERA [Suspect]
     Indication: ATTENTION DEFICIT/HYPERACTIVITY DISORDER
     Dates: start: 20040901, end: 20040925
  2. CEFADROXIL [Concomitant]
  3. PSEUDOEPHEDRINE HYDROCHLORIDE [Concomitant]

REACTIONS (1)
  - HALLUCINATION, VISUAL [None]
